FAERS Safety Report 13515440 (Version 3)
Quarter: 2017Q3

REPORT INFORMATION
  Report Type: Report from Study
  Country: US (occurrence: US)
  Receive Date: 20170504
  Receipt Date: 20170803
  Transmission Date: 20171127
  Serious: Yes (Hospitalization)
  Sender: FDA-Public Use
  Company Number: US-BAYER-2016-117016

PATIENT
  Age: 68 Year
  Sex: Female

DRUGS (21)
  1. NEXAVAR [Suspect]
     Active Substance: SORAFENIB
     Indication: DESMOID TUMOUR
     Dosage: 400 MG, BID
     Route: 048
     Dates: start: 20160604
  2. ASPIRIN. [Concomitant]
     Active Substance: ASPIRIN
     Indication: HAEMORRHAGE PROPHYLAXIS
     Dosage: 325 MG, QD
     Route: 048
  3. PRILOSEC [Concomitant]
     Active Substance: OMEPRAZOLE MAGNESIUM
     Dosage: 20 MG, QD
     Route: 048
  4. GLEEVEC [Concomitant]
     Active Substance: IMATINIB MESYLATE
     Dosage: DAILY DOSE 400 MG
     Route: 048
  5. PRINIVIL [Concomitant]
     Active Substance: LISINOPRIL
     Dosage: 5 MG, QD
     Route: 048
  6. PAXIL [Concomitant]
     Active Substance: PAROXETINE HYDROCHLORIDE
     Dosage: 20 MG, QD
     Route: 048
  7. METOPROLOL. [Concomitant]
     Active Substance: METOPROLOL
     Dosage: UNK
     Route: 017
     Dates: start: 20170411, end: 201704
  8. METOPROLOL. [Concomitant]
     Active Substance: METOPROLOL
     Dosage: UNK
     Route: 048
     Dates: start: 20170412
  9. TYLENOL [Concomitant]
     Active Substance: ACETAMINOPHEN
     Dosage: 1000 MG, BID
     Route: 048
  10. VITAMIN D [Concomitant]
     Active Substance: CHOLECALCIFEROL
     Indication: NUTRITIONAL SUPPLEMENTATION
     Dosage: DAILY DOSE 1000 U
     Route: 048
  11. PSYLLIUM [Concomitant]
     Active Substance: PLANTAGO SEED
     Indication: NUTRITIONAL SUPPLEMENTATION
     Route: 048
  12. FLOVENT [Concomitant]
     Active Substance: FLUTICASONE PROPIONATE
     Dosage: 2 DF, BID (INHALE 2 PUFFS BY MOUTH TWICE A DAY, 110MCG/ACTUATION)
  13. NAPROXEN. [Concomitant]
     Active Substance: NAPROXEN
     Dosage: 220 MG, BID
     Route: 048
  14. EFFEXOR [Concomitant]
     Active Substance: VENLAFAXINE HYDROCHLORIDE
     Dosage: 37.5 MG, OM
  15. NEXAVAR [Suspect]
     Active Substance: SORAFENIB
     Indication: CONNECTIVE TISSUE NEOPLASM
     Dosage: 400 MG, QD
     Route: 048
     Dates: start: 201610
  16. NEXAVAR [Suspect]
     Active Substance: SORAFENIB
     Indication: DESMOID TUMOUR
     Dosage: 400 MG DAILY DOSE
     Route: 048
     Dates: start: 201610
  17. CALCIUM [Concomitant]
     Active Substance: CALCIUM
     Indication: NUTRITIONAL SUPPLEMENTATION
     Route: 048
  18. NIACINAMIDE [Concomitant]
     Active Substance: NIACINAMIDE
     Indication: NUTRITIONAL SUPPLEMENTATION
     Route: 048
  19. SINGULAIR [Concomitant]
     Active Substance: MONTELUKAST SODIUM
     Dosage: 10 MG, QD (EVERY EVENING)
     Route: 048
  20. METROGEL [Concomitant]
     Active Substance: METRONIDAZOLE
     Dosage: APPLY TO AFFECTED AREA TWICE A DAY
     Route: 061
  21. ALBUTEROL. [Concomitant]
     Active Substance: ALBUTEROL
     Dosage: INHALE 90 MCG BY MOUTH AS NEEDED

REACTIONS (18)
  - Palpitations [Recovering/Resolving]
  - Dizziness [Recovering/Resolving]
  - Dyspnoea [Recovering/Resolving]
  - Diarrhoea [None]
  - Dry skin [None]
  - Nasopharyngitis [None]
  - Blood pressure increased [None]
  - Product use in unapproved indication [None]
  - Drug dose omission [None]
  - Asthenia [Recovering/Resolving]
  - Hypertension [None]
  - Dry mouth [None]
  - Atrial fibrillation [Recovering/Resolving]
  - Tachyarrhythmia [Recovering/Resolving]
  - Pain of skin [None]
  - Blood pressure increased [None]
  - Disorientation [Recovering/Resolving]
  - Fatigue [Not Recovered/Not Resolved]

NARRATIVE: CASE EVENT DATE: 201612
